FAERS Safety Report 7334796-6 (Version None)
Quarter: 2011Q1

REPORT INFORMATION
  Report Type: 
  Country: None (occurrence: None)
  Receive Date: 20110223
  Receipt Date: 20110210
  Transmission Date: 20110831
  Serious: Yes (Hospitalization, Disabling, Other)
  Sender: FDA-Public Use
  Company Number: TPG2011A00094

PATIENT
  Age: 62 Year
  Sex: Male

DRUGS (7)
  1. BISOPROLOL (BISOPROLOL) [Concomitant]
  2. SITAGLIPTIN (ORAL ANTIDIABETICS) [Concomitant]
  3. ACETYLSALICYLIC ACID SRT [Concomitant]
  4. ACTOS [Suspect]
     Indication: TYPE 2 DIABETES MELLITUS
     Dosage: (30 MG (30 MG, 1 IN 1 D)) (30 MG (30 MG, 1 IN 1 D))
     Route: 048
     Dates: start: 20090101, end: 20090501
  5. ACTOS [Suspect]
     Indication: TYPE 2 DIABETES MELLITUS
     Dosage: (30 MG (30 MG, 1 IN 1 D)) (30 MG (30 MG, 1 IN 1 D))
     Route: 048
     Dates: start: 20080101, end: 20080401
  6. NORVASC [Concomitant]
  7. METFORMIN (METFORMIN) [Concomitant]

REACTIONS (2)
  - BLADDER TRANSITIONAL CELL CARCINOMA [None]
  - MYELOID LEUKAEMIA [None]
